FAERS Safety Report 8924825 (Version 1)
Quarter: 2012Q4

REPORT INFORMATION
  Report Type: 
  Country: RU (occurrence: RU)
  Receive Date: 20121126
  Receipt Date: 20121126
  Transmission Date: 20130627
  Serious: Yes (Hospitalization, Other)
  Sender: FDA-Public Use
  Company Number: RU-ASTRAZENECA-2012SE88650

PATIENT
  Age: 33 Day
  Sex: Male
  Weight: .9 kg

DRUGS (9)
  1. SYNAGIS [Suspect]
     Indication: IMMUNISATION
     Route: 030
     Dates: start: 20121013, end: 20121013
  2. ZYVOX [Suspect]
     Indication: PNEUMONIA
     Route: 042
  3. ZYVOX [Suspect]
     Indication: ENTEROCOLITIS
     Route: 042
  4. TIENAM [Concomitant]
     Indication: PNEUMONIA
     Route: 042
  5. TIENAM [Concomitant]
     Indication: ENTEROCOLITIS
     Route: 042
  6. PHENOBARBITAL [Concomitant]
     Indication: CONVULSION NEONATAL
     Route: 048
  7. EPOCRIN [Concomitant]
     Indication: ANAEMIA NEONATAL
     Dates: start: 20121001
  8. VIT D3 [Concomitant]
     Indication: PROPHYLAXIS
     Dates: start: 20121001
  9. BILIFORM [Concomitant]
     Route: 048
     Dates: start: 20121001

REACTIONS (5)
  - Hepatic enzyme increased [Unknown]
  - Blood bilirubin increased [Unknown]
  - Cholestasis [Unknown]
  - Serum ferritin increased [Unknown]
  - Dyspepsia [Unknown]
